FAERS Safety Report 8771138 (Version 1)
Quarter: 2012Q4

REPORT INFORMATION
  Report Type: 
  Country: PL (occurrence: PL)
  Receive Date: 20120906
  Receipt Date: 20120906
  Transmission Date: 20130627
  Serious: Yes (Hospitalization)
  Sender: FDA-Public Use
  Company Number: PL-BRISTOL-MYERS SQUIBB COMPANY-16906075

PATIENT
  Age: 56 Year
  Sex: Female

DRUGS (2)
  1. CISPLATIN [Suspect]
     Indication: SQUAMOUS CELL CARCINOMA OF THE CERVIX
     Dosage: OCt2010 to Feb2011:6 course
     Dates: start: 201010, end: 201102
  2. TOPOTECAN [Suspect]
     Indication: SQUAMOUS CELL CARCINOMA OF THE CERVIX
     Dosage: OCt2010 to Feb2011:6 course
     Dates: start: 201010, end: 201102

REACTIONS (3)
  - Genital haemorrhage [Recovering/Resolving]
  - Shock haemorrhagic [Recovering/Resolving]
  - Renal failure acute [Unknown]
